FAERS Safety Report 5401725-1 (Version None)
Quarter: 2007Q3

REPORT INFORMATION
  Report Type: 
  Country: None (occurrence: None)
  Receive Date: 20070731
  Receipt Date: 20070717
  Transmission Date: 20080115
  Serious: Yes (Other)
  Sender: FDA-Public Use
  Company Number: US-ELI_LILLY_AND_COMPANY-US200707001797

PATIENT
  Age: 76 Year
  Sex: Female
  Weight: 45.351 kg

DRUGS (6)
  1. FORTEO [Suspect]
     Indication: OSTEOPOROSIS
     Dosage: 20 UG, UNK
     Dates: start: 20030101, end: 20030101
  2. FORTEO [Suspect]
     Dates: start: 20070717
  3. CALCIUM CHLORIDE [Concomitant]
  4. ZETIA [Concomitant]
  5. ERGOCALCIFEROL/CALCIUM PHOSP/CALCIUM SOD LACT [Concomitant]
  6. T4 [Concomitant]

REACTIONS (4)
  - DIZZINESS [None]
  - FEELING ABNORMAL [None]
  - OSTEOPOROSIS POSTMENOPAUSAL [None]
  - SPINAL FRACTURE [None]
